FAERS Safety Report 8407771-8 (Version None)
Quarter: 2012Q2

REPORT INFORMATION
  Report Type: 
  Country: None (occurrence: None)
  Receive Date: 20120604
  Receipt Date: 20120525
  Transmission Date: 20120825
  Serious: Yes (Congenital Anomaly)
  Sender: FDA-Public Use
  Company Number: US-GLAXOSMITHKLINE-A0979854A

PATIENT
  Sex: Male

DRUGS (7)
  1. LORTAB [Concomitant]
     Route: 064
  2. BETAMETHASONE [Concomitant]
     Route: 064
  3. IRON [Concomitant]
     Route: 064
  4. PAXIL [Suspect]
     Indication: PRODUCT USED FOR UNKNOWN INDICATION
     Dosage: 20MG PER DAY
     Route: 064
  5. IRON [Concomitant]
     Route: 064
  6. NAPROXEN [Concomitant]
     Route: 064
  7. MULTI-VITAMINS [Concomitant]
     Route: 064

REACTIONS (3)
  - FOETAL EXPOSURE DURING PREGNANCY [None]
  - ATRIAL SEPTAL DEFECT [None]
  - CONGENITAL PULMONARY HYPERTENSION [None]
